FAERS Safety Report 24599010 (Version 3)
Quarter: 2025Q2

REPORT INFORMATION
  Report Type: Spontaneous
  Country: US (occurrence: US)
  Receive Date: 20241110
  Receipt Date: 20250531
  Transmission Date: 20250716
  Serious: No
  Sender: SANOFI AVENTIS
  Company Number: US-SA-2024SA310979

PATIENT
  Age: 43 Year
  Sex: Female

DRUGS (2)
  1. DUPIXENT [Suspect]
     Active Substance: DUPILUMAB
     Indication: Dermatitis atopic
     Route: 058
     Dates: start: 20240914, end: 20240914
  2. DUPIXENT [Suspect]
     Active Substance: DUPILUMAB
     Dosage: 300 MG, QOW
     Route: 058
     Dates: start: 202409

REACTIONS (6)
  - Cough [Unknown]
  - Headache [Unknown]
  - Nasopharyngitis [Unknown]
  - Dermatitis atopic [Unknown]
  - Skin warm [Unknown]
  - Skin swelling [Unknown]

NARRATIVE: CASE EVENT DATE: 20240101
